FAERS Safety Report 4390039-7 (Version None)
Quarter: 2004Q2

REPORT INFORMATION
  Report Type: 
  Country: None (occurrence: None)
  Receive Date: 20040628
  Receipt Date: 20040614
  Transmission Date: 20050107
  Serious: Yes (Hospitalization)
  Sender: FDA-Public Use
  Company Number: SUS1-2004-00356

PATIENT
  Age: 45 Year
  Sex: Female

DRUGS (2)
  1. ADDERALL (AMPHETAMINE ASPARTATE, AMPHETAMINE SULFATE, DEXTROAMPHETAMIN [Suspect]
     Dosage: 10 MG, 1X/DAY:QD
  2. ADDERALL (AMPHETAMINE ASPARTATE, AMPHETAMINE SULFATE, DEXTROAMPHETAMIN [Suspect]
     Dosage: 5 MG, 2X/DAY: BID

REACTIONS (3)
  - HEADACHE [None]
  - HYPERTENSION [None]
  - MALIGNANT HYPERTENSION [None]
